FAERS Safety Report 8881676 (Version 1)
Quarter: 2012Q4

REPORT INFORMATION
  Report Type: 
  Country: US (occurrence: US)
  Receive Date: 20121101
  Receipt Date: 20121101
  Transmission Date: 20130627
  Serious: Yes (Other)
  Sender: FDA-Public Use
  Company Number: US-PFIZER INC-HQWYE267705NOV04

PATIENT
  Age: 64 Year
  Sex: Female

DRUGS (7)
  1. PREMARIN [Suspect]
     Indication: HORMONE REPLACEMENT THERAPY
     Dosage: 0.9 mg, UNK
     Route: 048
     Dates: start: 1985, end: 2001
  2. MEDROXYPROGESTERONE ACETATE [Suspect]
     Indication: HORMONE REPLACEMENT THERAPY
     Dosage: UNK
     Route: 048
     Dates: start: 1986, end: 2001
  3. PROVERA [Suspect]
     Indication: HORMONE REPLACEMENT THERAPY
     Dosage: 5 mg, UNK
     Route: 048
     Dates: start: 1985, end: 2001
  4. CYCRIN [Suspect]
     Indication: HORMONE REPLACEMENT THERAPY
     Dosage: UNK
     Route: 048
     Dates: start: 1986, end: 2001
  5. MEDROXYPROGESTERONE [Suspect]
     Indication: HORMONE REPLACEMENT THERAPY
     Dosage: 5 mg, UNK
     Route: 048
     Dates: start: 199909, end: 200104
  6. TOPROL XL [Concomitant]
     Indication: HYPERTENSION
     Dosage: UNK
     Dates: start: 1965
  7. PROZAC [Concomitant]
     Indication: DEPRESSION
     Dosage: UNK
     Dates: start: 1992

REACTIONS (1)
  - Breast cancer [Unknown]
